FAERS Safety Report 8532489-0 (Version None)
Quarter: 2012Q3

REPORT INFORMATION
  Report Type: 
  Country: None (occurrence: None)
  Receive Date: 20120716
  Receipt Date: 20120716
  Transmission Date: 20120928
  Serious: Yes (Hospitalization)
  Sender: FDA-Public Use
  Company Number: None

PATIENT
  Age: 27 Year
  Sex: Female
  Weight: 52.1637 kg

DRUGS (1)
  1. EPOGEN [Suspect]
     Indication: ANAEMIA
     Dosage: 1 ML SUBDERMAL
     Route: 059
     Dates: start: 20120709, end: 20120709

REACTIONS (9)
  - ABDOMINAL PAIN [None]
  - ABDOMINAL DISTENSION [None]
  - HYPERHIDROSIS [None]
  - HEART RATE INCREASED [None]
  - PYREXIA [None]
  - HYPOTENSION [None]
  - PALPITATIONS [None]
  - FLUSHING [None]
  - DECREASED APPETITE [None]
